FAERS Safety Report 4579629-6 (Version None)
Quarter: 2005Q1

REPORT INFORMATION
  Report Type: 
  Country: None (occurrence: None)
  Receive Date: 20050210
  Receipt Date: 20050125
  Transmission Date: 20050727
  Serious: Yes (Death)
  Sender: FDA-Public Use
  Company Number: 10074

PATIENT

DRUGS (2)
  1. METHOTREXATE [Suspect]
     Indication: MENINGEAL NEOPLASM
     Dosage: 10 MG/M2 FORTNIGHTLY, IT
     Dates: start: 19790101
  2. METHOTREXATE [Suspect]
     Indication: RHABDOMYOSARCOMA
     Dosage: 10 MG/M2 FORTNIGHTLY, IT
     Dates: start: 19790101

REACTIONS (2)
  - NEUTROPENIA [None]
  - PNEUMONIA [None]
